FAERS Safety Report 12927439 (Version 1)
Quarter: 2016Q4

REPORT INFORMATION
  Report Type: Spontaneous
  Country: US (occurrence: US)
  Receive Date: 20161109
  Receipt Date: 20161109
  Transmission Date: 20170207
  Serious: No
  Sender: FDA-Public Use
  Company Number: US-ALLERGAN-1522365US

PATIENT

DRUGS (1)
  1. ALPHAGAN P [Suspect]
     Active Substance: BRIMONIDINE TARTRATE
     Indication: VISION BLURRED
     Dosage: UNK
     Route: 047
     Dates: start: 2015

REACTIONS (2)
  - Off label use [Unknown]
  - Sensation of foreign body [Unknown]
